FAERS Safety Report 6064436-8 (Version None)
Quarter: 2009Q2

REPORT INFORMATION
  Report Type: 
  Country: None (occurrence: None)
  Receive Date: 20090203
  Receipt Date: 20090203
  Transmission Date: 20091009
  Serious: Yes (Life-Threatening)
  Sender: FDA-Public Use
  Company Number: None

PATIENT
  Age: 26 Year
  Sex: Female
  Weight: 54.4316 kg

DRUGS (1)
  1. CIPROFLOXACIN HCL [Suspect]
     Indication: URINARY TRACT INFECTION
     Dosage: 500 MG 1 TWICE DAILY
     Dates: start: 20090128, end: 20090129

REACTIONS (17)
  - ANXIETY [None]
  - DEPRESSION [None]
  - DIZZINESS [None]
  - DYSPNOEA [None]
  - EYE MOVEMENT DISORDER [None]
  - FAECES DISCOLOURED [None]
  - FEELING ABNORMAL [None]
  - HAEMATOCHEZIA [None]
  - HEADACHE [None]
  - HEART RATE IRREGULAR [None]
  - HYPERHIDROSIS [None]
  - INSOMNIA [None]
  - MUSCLE TWITCHING [None]
  - MUSCULAR WEAKNESS [None]
  - PARANOIA [None]
  - PHOTOPHOBIA [None]
  - RESTLESSNESS [None]
